FAERS Safety Report 23830974 (Version 1)
Quarter: 2024Q2

REPORT INFORMATION
  Report Type: Spontaneous
  Country: US (occurrence: US)
  Receive Date: 20240508
  Receipt Date: 20240508
  Transmission Date: 20240715
  Serious: Yes (Hospitalization, Other)
  Sender: FDA-Public Use
  Company Number: US-SA-SAC20240507000216

PATIENT
  Age: 52 Year
  Sex: Male

DRUGS (17)
  1. DUPIXENT [Suspect]
     Active Substance: DUPILUMAB
     Indication: Dermatitis atopic
     Dosage: 300MG, QOW
     Route: 058
  2. LYRICA [Concomitant]
     Active Substance: PREGABALIN
  3. MOUNJARO [Concomitant]
     Active Substance: TIRZEPATIDE
  4. SYNJARDY [Concomitant]
     Active Substance: EMPAGLIFLOZIN\METFORMIN HYDROCHLORIDE
  5. COMBIVENT RESPIMAT [Concomitant]
     Active Substance: ALBUTEROL SULFATE\IPRATROPIUM BROMIDE
  6. IPRATROPIUM [Concomitant]
     Active Substance: IPRATROPIUM
  7. ATORVASTATIN [Concomitant]
     Active Substance: ATORVASTATIN
  8. DEXILANT [Concomitant]
     Active Substance: DEXLANSOPRAZOLE
  9. DILTIAZEM HYDROCHLORIDE [Concomitant]
     Active Substance: DILTIAZEM HYDROCHLORIDE
  10. DULOXETINE HYDROCHLORIDE [Concomitant]
     Active Substance: DULOXETINE HYDROCHLORIDE
  11. ELIQUIS [Concomitant]
     Active Substance: APIXABAN
  12. GLIPIZIDE [Concomitant]
     Active Substance: GLIPIZIDE
  13. JANUMET [Concomitant]
     Active Substance: METFORMIN HYDROCHLORIDE\SITAGLIPTIN PHOSPHATE
  14. METOPROLOL [Concomitant]
     Active Substance: METOPROLOL
  15. MONTELUKAST [Concomitant]
     Active Substance: MONTELUKAST SODIUM
  16. PREGABALIN [Concomitant]
     Active Substance: PREGABALIN
  17. TAMSULOSIN HYDROCHLORIDE [Concomitant]
     Active Substance: TAMSULOSIN HYDROCHLORIDE

REACTIONS (6)
  - Chronic obstructive pulmonary disease [Unknown]
  - Pneumonia [Unknown]
  - Pulmonary contusion [Unknown]
  - Rib fracture [Unknown]
  - Fall [Unknown]
  - Inappropriate schedule of product administration [Unknown]

NARRATIVE: CASE EVENT DATE: 20240101
